FAERS Safety Report 14144556 (Version 3)
Quarter: 2017Q4

REPORT INFORMATION
  Report Type: Spontaneous
  Country: DE (occurrence: DE)
  Receive Date: 20171031
  Receipt Date: 20171203
  Transmission Date: 20180321
  Serious: Yes (Other)
  Sender: FDA-Public Use
  Company Number: DE-BRISTOL-MYERS SQUIBB COMPANY-BMS-2017-096771

PATIENT
  Age: 65 Year
  Sex: Female
  Weight: 58 kg

DRUGS (3)
  1. ELIQUIS [Suspect]
     Active Substance: APIXABAN
     Indication: CEREBROVASCULAR ACCIDENT PROPHYLAXIS
     Dosage: 5 MG, BID
     Route: 065
     Dates: start: 2014
  2. ELIQUIS [Suspect]
     Active Substance: APIXABAN
     Indication: PRODUCT USED FOR UNKNOWN INDICATION
     Dosage: 1 DF, UNK
     Route: 065
  3. ELIQUIS [Suspect]
     Active Substance: APIXABAN
     Indication: PRODUCT USED FOR UNKNOWN INDICATION
     Dosage: 5 MG, BID
     Route: 065

REACTIONS (7)
  - Haematoma [Recovered/Resolved]
  - Haemorrhoidal haemorrhage [Recovered/Resolved]
  - Product use issue [Unknown]
  - Post procedural haemorrhage [Recovered/Resolved]
  - Tooth disorder [Unknown]
  - Mitral valve disease [Unknown]
  - Off label use [Unknown]

NARRATIVE: CASE EVENT DATE: 201710
